FAERS Safety Report 11926721 (Version 2)
Quarter: 2016Q1

REPORT INFORMATION
  Report Type: Spontaneous
  Country: FR (occurrence: FR)
  Receive Date: 20160119
  Receipt Date: 20160126
  Transmission Date: 20160526
  Serious: Yes (Hospitalization, Other)
  Sender: FDA-Public Use
  Company Number: FR-PFIZER INC-2016019004

PATIENT
  Age: 20 Year
  Sex: Female

DRUGS (13)
  1. LUTENYL [Concomitant]
     Active Substance: NOMEGESTROL ACETATE
     Indication: ENDOMETRIOSIS
     Dosage: UNK
     Dates: start: 201509, end: 201510
  2. EXACYL [Suspect]
     Active Substance: TRANEXAMIC ACID
     Dosage: 1 G, 3X/DAY
     Route: 048
     Dates: start: 20151020
  3. ACUPAN [Concomitant]
     Active Substance: NEFOPAM HYDROCHLORIDE
     Indication: PELVIC PAIN
     Dosage: 20 MG, 3X/DAY PER EIGHT HOURS)
     Route: 042
     Dates: start: 20151020
  4. LUTERAN [Concomitant]
     Active Substance: CHLORMADINONE ACETATE
     Dosage: 10 MG, DAILY
     Dates: start: 201510
  5. EUPANTOL [Suspect]
     Active Substance: PANTOPRAZOLE SODIUM
     Indication: ABDOMINAL PAIN UPPER
     Dosage: 40 MG, DAILY
     Route: 042
     Dates: start: 20151020
  6. KLIPAL CODEINE [Suspect]
     Active Substance: ACETAMINOPHEN\CODEINE PHOSPHATE
     Indication: METRORRHAGIA
     Dosage: 2 DF, DAILY
     Route: 048
     Dates: start: 20151020, end: 20151020
  7. PROFENID [Concomitant]
     Active Substance: KETOPROFEN
     Indication: PELVIC PAIN
     Dosage: 100 MG, UNK
     Route: 042
     Dates: start: 20151020
  8. PARACETAMOL PANPHARMA [Suspect]
     Active Substance: ACETAMINOPHEN
     Dosage: 1 G, 4X/DAY (10 MG/ML Q 6HR)
     Route: 042
  9. SPASFON /00934601/ [Suspect]
     Active Substance: PHLOROGLUCINOL
     Dosage: 2 DF, 3X/DAY (TWO VIALS PER EIGHT HOURS)
     Route: 042
     Dates: end: 20151020
  10. CONTRAMAL [Suspect]
     Active Substance: TRAMADOL HYDROCHLORIDE
     Indication: PELVIC PAIN
     Dosage: 100 MG/2 ML
     Route: 042
     Dates: end: 20151020
  11. TRAMADOL. [Suspect]
     Active Substance: TRAMADOL
     Dosage: UNK
     Route: 048
     Dates: end: 20151020
  12. KETOPROFENE MEDAC [Suspect]
     Active Substance: KETOPROFEN
     Dosage: 100 MG/4 ML, DAILY
     Route: 042
     Dates: start: 20151020
  13. ATARAX [Suspect]
     Active Substance: HYDROXYZINE\HYDROXYZINE HYDROCHLORIDE
     Indication: ERYTHEMA
     Dosage: 100 MG/2 ML
     Route: 042
     Dates: start: 20151020

REACTIONS (2)
  - Seizure [Recovered/Resolved]
  - Hepatic enzyme increased [Recovered/Resolved]

NARRATIVE: CASE EVENT DATE: 20151020
